FAERS Safety Report 18354149 (Version 1)
Quarter: 2020Q4

REPORT INFORMATION
  Report Type: Spontaneous
  Country: US (occurrence: US)
  Receive Date: 20201006
  Receipt Date: 20201006
  Transmission Date: 20210114
  Serious: No
  Sender: FDA-Public Use
  Company Number: NVSC2020US265631

PATIENT
  Sex: Female

DRUGS (1)
  1. RECLAST [Suspect]
     Active Substance: ZOLEDRONIC ACID
     Indication: PRODUCT USED FOR UNKNOWN INDICATION
     Dosage: UNK (TOOK RECLAST ON INFUSION A WEEK AGO)
     Route: 041
     Dates: start: 20200922

REACTIONS (20)
  - Procedural pain [Unknown]
  - Feeling abnormal [Unknown]
  - Chest discomfort [Unknown]
  - Chest pain [Unknown]
  - Tremor [Unknown]
  - Hyperhidrosis [Unknown]
  - Cough [Unknown]
  - Dry skin [Unknown]
  - Balance disorder [Unknown]
  - Nausea [Unknown]
  - Feeling of body temperature change [Unknown]
  - Dry mouth [Unknown]
  - Fatigue [Unknown]
  - Neck pain [Unknown]
  - Back pain [Unknown]
  - Chills [Unknown]
  - Head discomfort [Unknown]
  - Arthralgia [Unknown]
  - Pain [Unknown]
  - Dizziness [Unknown]
